FAERS Safety Report 4753916-0 (Version None)
Quarter: 2005Q3

REPORT INFORMATION
  Report Type: 
  Country: None (occurrence: None)
  Receive Date: 20050823
  Receipt Date: 20050615
  Transmission Date: 20060218
  Serious: No
  Sender: FDA-Public Use
  Company Number: 215353

PATIENT
  Age: 56 Year
  Sex: Male

DRUGS (5)
  1. RAPTIVA [Suspect]
     Indication: PSORIASIS
     Dosage: 0.8 ML, 1/WEEK, SUBCUTANEOUS
     Route: 058
     Dates: start: 20050413
  2. LIPITOPR (ATORVASTATIN CALCIUM) [Concomitant]
  3. NORVASC [Concomitant]
  4. BREVOXYL (SIMETHICONE, BENZOYL PEROXIDE) [Concomitant]
  5. DOXYCYCLINE [Concomitant]

REACTIONS (1)
  - PSORIASIS [None]
